FAERS Safety Report 7526295-3 (Version None)
Quarter: 2011Q2

REPORT INFORMATION
  Report Type: 
  Country: None (occurrence: None)
  Receive Date: 20110606
  Receipt Date: 20110204
  Transmission Date: 20111010
  Serious: Yes (Hospitalization, Other)
  Sender: FDA-Public Use
  Company Number: US-BAYER-201039919NA

PATIENT
  Age: 38 Year
  Sex: Female
  Weight: 65.76 kg

DRUGS (8)
  1. YASMIN [Suspect]
     Indication: CONTRACEPTION
     Dosage: UNK
     Route: 048
     Dates: start: 20030101, end: 20090101
  2. FLUCONAZOLE [Concomitant]
     Dosage: UNK
     Dates: start: 20050101
  3. YAZ [Suspect]
     Indication: CONTRACEPTION
     Dosage: UNK
     Route: 048
     Dates: start: 20030101, end: 20090101
  4. NEXIUM [Concomitant]
     Indication: GASTROOESOPHAGEAL REFLUX DISEASE
  5. ALPRAZOLAM [Concomitant]
     Indication: ANXIETY
  6. ALPRAZOLAM [Concomitant]
     Indication: INSOMNIA
  7. ASCORBIC ACID [Concomitant]
  8. VITAMINS NOS [Concomitant]

REACTIONS (5)
  - CHOLECYSTITIS CHRONIC [None]
  - INSOMNIA [None]
  - CHOLELITHIASIS [None]
  - ANXIETY [None]
  - MENTAL DISORDER [None]
